FAERS Safety Report 7759193-0 (Version None)
Quarter: 2011Q3

REPORT INFORMATION
  Report Type: 
  Country: None (occurrence: None)
  Receive Date: 20110915
  Receipt Date: 20110901
  Transmission Date: 20111222
  Serious: Yes (Death, Hospitalization, Other)
  Sender: FDA-Public Use
  Company Number: 1713747-2011-00014

PATIENT
  Sex: Female

DRUGS (2)
  1. DELFLEX W/ DEXTROSE 2.5% LOW MAGNESIUM LOW CALCIUM [Suspect]
     Indication: RENAL FAILURE CHRONIC
     Dosage: INTRAPERITONEAL
     Route: 033
     Dates: start: 20110826
  2. DELFLEX W/ DEXTROSE 4.25% [Suspect]
     Indication: RENAL FAILURE CHRONIC
     Dosage: INTRAPERITONEAL
     Route: 033
     Dates: start: 20110826

REACTIONS (2)
  - FALL [None]
  - GENERAL PHYSICAL HEALTH DETERIORATION [None]
